FAERS Safety Report 5858505-2 (Version None)
Quarter: 2008Q3

REPORT INFORMATION
  Report Type: 
  Country: None (occurrence: None)
  Receive Date: 20080826
  Receipt Date: 20080814
  Transmission Date: 20090109
  Serious: Yes (Other)
  Sender: FDA-Public Use
  Company Number: US-PFIZER INC-2008049943

PATIENT
  Sex: Male

DRUGS (1)
  1. ZOLOFT [Suspect]
     Route: 064

REACTIONS (9)
  - AORTIC VALVE INCOMPETENCE [None]
  - ATRIAL SEPTAL DEFECT [None]
  - AURICULAR SWELLING [None]
  - DOUBLE OUTLET RIGHT VENTRICLE [None]
  - DRUG EXPOSURE DURING PREGNANCY [None]
  - HEART DISEASE CONGENITAL [None]
  - RESPIRATORY DISTRESS [None]
  - TRANSPOSITION OF THE GREAT VESSELS [None]
  - VENTRICULAR SEPTAL DEFECT [None]
